FAERS Safety Report 4465285-4 (Version None)
Quarter: 2004Q4

REPORT INFORMATION
  Report Type: 
  Country: None (occurrence: None)
  Receive Date: 20041001
  Receipt Date: 20041001
  Transmission Date: 20050328
  Serious: No
  Sender: FDA-Public Use
  Company Number: None

PATIENT
  Sex: Male

DRUGS (2)
  1. DILANTIN [Suspect]
     Indication: CONVULSION
     Dosage: 400 MG DAILY
  2. DILANTIN [Suspect]
     Indication: DIABETES MELLITUS
     Dosage: 400 MG DAILY

REACTIONS (1)
  - DRUG INEFFECTIVE [None]
